FAERS Safety Report 15335431 (Version 1)
Quarter: 2018Q3

REPORT INFORMATION
  Report Type: Report from Study
  Country: US (occurrence: US)
  Receive Date: 20180830
  Receipt Date: 20180830
  Transmission Date: 20181010
  Serious: Yes (Death)
  Sender: FDA-Public Use
  Company Number: US-BAYER-2018-162347

PATIENT
  Age: 14 Year
  Sex: Female

DRUGS (1)
  1. ACETAMINOPHEN. [Suspect]
     Active Substance: ACETAMINOPHEN

REACTIONS (2)
  - Toxicity to various agents [Fatal]
  - Hepatotoxicity [Fatal]
